FAERS Safety Report 23462257 (Version 2)
Quarter: 2024Q3

REPORT INFORMATION
  Report Type: Spontaneous
  Country: US (occurrence: US)
  Receive Date: 20240131
  Receipt Date: 20240717
  Transmission Date: 20241017
  Serious: Yes (Other)
  Sender: BRISTOL MYERS SQUIBB
  Company Number: US-BRISTOL-MYERS SQUIBB COMPANY-2024-015379

PATIENT
  Age: 71 Year
  Sex: Male

DRUGS (2)
  1. LENALIDOMIDE [Suspect]
     Active Substance: LENALIDOMIDE
     Indication: Bone disorder
     Dosage: TAKE ONE CAPSULE BY MOUTH EVERY
     Route: 048
  2. LENALIDOMIDE [Suspect]
     Active Substance: LENALIDOMIDE
     Dosage: TAKE 1 CAPSULE BY MOUTH WHOLE W/ OR W/O FOOD EVERY MORNING FOR 21 DAYS, THEN OFF FOR 7 DAYS FOR A 28
     Route: 048
     Dates: start: 20230401

REACTIONS (13)
  - Back pain [Unknown]
  - Spondylitis [Unknown]
  - Dyspnoea [Unknown]
  - Weight increased [Unknown]
  - Nephrolithiasis [Unknown]
  - Rib fracture [Unknown]
  - Memory impairment [Unknown]
  - Off label use [Unknown]
  - Nasal congestion [Unknown]
  - Rash [Recovered/Resolved]
  - Neuralgia [Unknown]
  - Pulmonary congestion [Unknown]
  - Blood calcium decreased [Recovered/Resolved]
